FAERS Safety Report 16583210 (Version 2)
Quarter: 2019Q3

REPORT INFORMATION
  Report Type: Report from Study
  Country: ZA (occurrence: ZA)
  Receive Date: 20190717
  Receipt Date: 20190913
  Transmission Date: 20191004
  Serious: Yes (Other)
  Sender: FDA-Public Use
  Company Number: ZA-SA-2019SA161933

PATIENT
  Age: 55 Year
  Sex: Female

DRUGS (8)
  1. GLUCOPHAGE [Concomitant]
     Active Substance: METFORMIN HYDROCHLORIDE
     Dosage: 500 MG, BID
     Dates: start: 20000101
  2. DIAGLUCIDE [Concomitant]
     Active Substance: GLICLAZIDE
     Dosage: BB-90 MG (BEFORE BREAKFAST)
     Dates: start: 20000101
  3. DISPRIN CARDIOCARE [Concomitant]
     Active Substance: ASPIRIN
     Dosage: 100 MG, QD (AFTER SUPPER)
     Dates: start: 20000101
  4. SEEBRI BREEZHALER [Concomitant]
     Active Substance: GLYCOPYRROLATE
     Dosage: 50 UG, QD (BEFORE BREAKFAST)
     Route: 055
     Dates: start: 19950101
  5. ADCO-SIMVASTATIN [Concomitant]
     Active Substance: SIMVASTATIN
     Dosage: 10 MG, QD (AFTER SUPPER)
     Dates: start: 20000101
  6. INSULIN GLARGINE [Suspect]
     Active Substance: INSULIN GLARGINE
     Dosage: 45 U, HS
     Dates: start: 20190404
  7. MONTEFLO [Concomitant]
     Dosage: 10 MG, QD (BEFORE BREAKFAST)
     Dates: start: 19950101
  8. VECTORYL PLUS [Concomitant]
     Active Substance: INDAPAMIDE\PERINDOPRIL ERBUMINE
     Dosage: 4MG, QD
     Dates: start: 20000101

REACTIONS (6)
  - Paraesthesia [Not Recovered/Not Resolved]
  - Hypoglycaemia [Recovered/Resolved]
  - Abdominal discomfort [Not Recovered/Not Resolved]
  - Glycosylated haemoglobin increased [Unknown]
  - Abdominal distension [Not Recovered/Not Resolved]
  - Lower respiratory tract infection [Not Recovered/Not Resolved]
